FAERS Safety Report 7712165-4 (Version None)
Quarter: 2011Q3

REPORT INFORMATION
  Report Type: 
  Country: None (occurrence: None)
  Receive Date: 20110826
  Receipt Date: 20110818
  Transmission Date: 20111222
  Serious: Yes (Hospitalization)
  Sender: FDA-Public Use
  Company Number: DE-SANOFI-AVENTIS-2011SA053222

PATIENT
  Age: 58 Year
  Sex: Male

DRUGS (14)
  1. ACETYLSALICYLIC ACID [Concomitant]
     Route: 048
  2. AMLODIPINE [Concomitant]
     Route: 048
  3. RAMIPRIL [Concomitant]
     Indication: HYPERTENSION
     Route: 048
  4. ESIDRIX [Concomitant]
     Route: 048
  5. XELODA [Suspect]
     Indication: RECTAL CANCER
  6. THERAPEUTIC RADIOPHARMACEUTICALS [Suspect]
     Indication: RECTAL CANCER
  7. PANTOPRAZOLE [Concomitant]
     Indication: PROPHYLAXIS
     Route: 048
  8. METFORMIN [Concomitant]
     Route: 048
  9. ALL OTHER THERAPEUTIC PRODUCTS [Concomitant]
     Route: 048
  10. LASIX [Concomitant]
     Indication: HYPERTENSION
     Route: 048
  11. OXALIPLATIN [Suspect]
     Indication: RECTAL CANCER
  12. BISOPROLOL FUMARATE [Concomitant]
     Indication: HYPERTENSION
     Route: 048
  13. SIMAVASTATIN [Concomitant]
     Route: 048
  14. GLYBURIDE [Concomitant]
     Route: 048

REACTIONS (2)
  - WOUND INFECTION [None]
  - IMPAIRED HEALING [None]
